FAERS Safety Report 8043537-9 (Version None)
Quarter: 2012Q1

REPORT INFORMATION
  Report Type: 
  Country: None (occurrence: None)
  Receive Date: 20120112
  Receipt Date: 20120110
  Transmission Date: 20120608
  Serious: Yes (Death, Other)
  Sender: FDA-Public Use
  Company Number: CA-ABBOTT-12P-028-0888669-00

PATIENT
  Sex: Male
  Weight: 81.72 kg

DRUGS (1)
  1. LUPRON DEPOT [Suspect]
     Indication: PROSTATE CANCER
     Dates: start: 20110708, end: 20111012

REACTIONS (9)
  - CEREBRAL MICROANGIOPATHY [None]
  - CEREBRAL INFARCTION [None]
  - CEREBELLAR INFARCTION [None]
  - METASTASES TO BONE [None]
  - CEREBROVASCULAR ACCIDENT [None]
  - METASTASES TO MENINGES [None]
  - PROSTATE CANCER METASTATIC [None]
  - CEREBRAL SMALL VESSEL ISCHAEMIC DISEASE [None]
  - ACUTE SINUSITIS [None]
